FAERS Safety Report 25737312 (Version 2)
Quarter: 2025Q3

REPORT INFORMATION
  Report Type: Spontaneous
  Country: TR (occurrence: TR)
  Receive Date: 20250828
  Receipt Date: 20250829
  Transmission Date: 20251021
  Serious: Yes (Death)
  Sender: NOVARTIS
  Company Number: TR-002147023-NVSC2023TR280985

PATIENT
  Age: 52 Year
  Sex: Male
  Weight: 56 kg

DRUGS (2)
  1. GLIVEC [Suspect]
     Active Substance: IMATINIB MESYLATE
     Indication: Chronic myeloid leukaemia
     Route: 065
     Dates: start: 20030401, end: 20090408
  2. TASIGNA [Suspect]
     Active Substance: NILOTINIB
     Indication: Chronic myeloid leukaemia
     Route: 065
     Dates: start: 20090408, end: 20110507

REACTIONS (4)
  - Polyomavirus viraemia [Fatal]
  - Thrombotic microangiopathy [Fatal]
  - Drug resistance [Unknown]
  - Loss of therapeutic response [Unknown]
